FAERS Safety Report 15250586 (Version 1)
Quarter: 2018Q3

REPORT INFORMATION
  Report Type: Spontaneous
  Country: US (occurrence: US)
  Receive Date: 20180716
  Receipt Date: 20180716
  Transmission Date: 20181010
  Serious: Yes (Other)
  Sender: FDA-Public Use
  Company Number: None

PATIENT
  Age: 66 Year
  Sex: Male
  Weight: 108 kg

DRUGS (17)
  1. NOVOLIN [Concomitant]
     Active Substance: INSULIN HUMAN
  2. HYDROCODONE?APAP [Concomitant]
     Active Substance: ACETAMINOPHEN\HYDROCODONE
  3. ZOFRAN [Concomitant]
     Active Substance: ONDANSETRON HYDROCHLORIDE
  4. VOTRIENT [Suspect]
     Active Substance: PAZOPANIB HYDROCHLORIDE
     Indication: RENAL CANCER
     Route: 048
     Dates: start: 20180126
  5. ACCUPRIL [Concomitant]
     Active Substance: QUINAPRIL HYDROCHLORIDE
  6. VITAMIN B COMPLEX [Concomitant]
     Active Substance: CYANOCOBALAMIN\DEXPANTHENOL\NIACINAMIDE\PYRIDOXINE HYDROCHLORIDE\RIBOFLAVIN 5^-PHOSPHATE SODIUM\THIAMINE HYDROCHLORIDE\VITAMIN B COMPLEX
  7. ONDANSETRON [Concomitant]
     Active Substance: ONDANSETRON
  8. PRAVACHOL [Concomitant]
     Active Substance: PRAVASTATIN SODIUM
  9. COUMADIN [Concomitant]
     Active Substance: WARFARIN SODIUM
  10. CALCIUM [Concomitant]
     Active Substance: CALCIUM
  11. BACLOFEN. [Concomitant]
     Active Substance: BACLOFEN
  12. VITAMIN D3 [Concomitant]
     Active Substance: CHOLECALCIFEROL
  13. MAGNESIUM [Concomitant]
     Active Substance: MAGNESIUM
  14. RANITIDINE. [Concomitant]
     Active Substance: RANITIDINE
  15. DILTIAZEM. [Concomitant]
     Active Substance: DILTIAZEM
  16. ASPIRIN. [Concomitant]
     Active Substance: ASPIRIN
  17. PROCHLORPERAZINE. [Concomitant]
     Active Substance: PROCHLORPERAZINE

REACTIONS (3)
  - Abdominal discomfort [None]
  - Vomiting [None]
  - Nausea [None]
